FAERS Safety Report 7163078-0 (Version None)
Quarter: 2010Q4

REPORT INFORMATION
  Report Type: 
  Country: None (occurrence: None)
  Receive Date: 20101215
  Receipt Date: 20100222
  Transmission Date: 20110411
  Serious: Yes (Other)
  Sender: FDA-Public Use
  Company Number: US-PFIZER INC-2010023005

PATIENT
  Sex: Male
  Weight: 87.075 kg

DRUGS (7)
  1. LYRICA [Suspect]
     Indication: NEUROPATHY PERIPHERAL
     Dosage: 100 MG, 2X/DAY
     Route: 048
  2. LYRICA [Suspect]
     Indication: HYPOAESTHESIA
  3. LYRICA [Suspect]
     Indication: PAIN IN EXTREMITY
  4. ZOCOR [Concomitant]
     Indication: BLOOD CHOLESTEROL INCREASED
     Dosage: 40 MG, UNK
     Route: 048
  5. FLOMAX [Concomitant]
     Indication: PROSTATIC DISORDER
     Dosage: 50 MG, AS NEEDED ONCE OR TWICE A WEEK
     Route: 048
  6. ATENOLOL [Concomitant]
     Indication: HYPERTENSION
     Dosage: 25 MG, UNK
     Route: 048
  7. BENADRYL [Concomitant]
     Indication: SLEEP DISORDER

REACTIONS (1)
  - ERECTILE DYSFUNCTION [None]
